FAERS Safety Report 25848721 (Version 1)
Quarter: 2025Q3

REPORT INFORMATION
  Report Type: Spontaneous
  Country: US (occurrence: None)
  Receive Date: 20250925
  Receipt Date: 20250925
  Transmission Date: 20251020
  Serious: Yes (Hospitalization)
  Sender: FDA-CTU
  Company Number: None

PATIENT
  Age: 61 Year
  Sex: Male

DRUGS (1)
  1. DASATINIB [Suspect]
     Active Substance: DASATINIB
     Indication: Acute leukaemia
     Dosage: FREQUENCY : DAILY;?
     Route: 048
     Dates: start: 20250829

REACTIONS (1)
  - Dizziness [None]

NARRATIVE: CASE EVENT DATE: 20250902
